FAERS Safety Report 10205001 (Version 3)
Quarter: 2014Q3

REPORT INFORMATION
  Report Type: Spontaneous
  Country: US (occurrence: None)
  Receive Date: 20140527
  Receipt Date: 20140718
  Transmission Date: 20150326
  Serious: Yes (Death, Hospitalization)
  Sender: FDA-Public Use
  Company Number: UNT-2014-000489

PATIENT
  Age: 66 Year
  Sex: Female
  Weight: 45.7 kg

DRUGS (27)
  1. TYVASO [Suspect]
     Active Substance: TREPROSTINIL
     Indication: SYSTEMIC SCLEROSIS
     Route: 055
     Dates: start: 20121015
  2. TRACLEER /01587701/ (BOSENTAN) [Concomitant]
  3. ADCIRCA [Concomitant]
     Active Substance: TADALAFIL
  4. KEFLEX /00145501/ (CEFALEXIN) [Concomitant]
  5. COLCRYS [Concomitant]
     Active Substance: COLCHICINE
  6. ADVAIR HFA (FLUTICASONE PROPIONATE, SALMETEROL XINAFOATE) [Concomitant]
  7. ATIVAN [Concomitant]
     Active Substance: LORAZEPAM
  8. NIFEDICAL (NIFEDIPINE) [Concomitant]
  9. ULTRAM /00599202/ (TRAMADOL HYDROCHLORIDE) [Concomitant]
  10. NORCO (HYDROCODONE BITARTRATE, PARACETAMOL) [Concomitant]
  11. OXYGEN (OXYGEN) [Concomitant]
     Active Substance: OXYGEN
  12. SILDENAFIL [Concomitant]
     Active Substance: SILDENAFIL
  13. ZITHROMAX [Concomitant]
     Active Substance: AZITHROMYCIN DIHYDRATE
  14. REGLAN /00041902/ (METOCLOPRAMIDE HYDROCHLORIDE) [Concomitant]
  15. MAXZIDE (HYDROCHLOROTHIAZIDE, TRIAMTERENE) [Concomitant]
  16. TYVASO [Suspect]
     Active Substance: TREPROSTINIL
     Indication: COR PULMONALE CHRONIC
     Route: 055
     Dates: start: 20121015
  17. CLEOCIN /00166002/ (CLINDAMYCIN HYDROCHLORIDE) [Concomitant]
  18. NEURONTIN [Concomitant]
     Active Substance: GABAPENTIN
  19. NEXIUM /01479302/ (ESOMEPRAZOLE MAGNESIUM) [Concomitant]
  20. DURAGESIC /00174601/ (FENTANYL) [Concomitant]
  21. COMBIVENT RESPIMAT (IPRATROPIUM BROMIDE, SALBUTAMOL SULFATE) [Concomitant]
  22. LIPITOR [Concomitant]
     Active Substance: ATORVASTATIN CALCIUM
  23. MIACALCIN (CALCITONIN, SALMON) [Concomitant]
  24. CELEBREX [Concomitant]
     Active Substance: CELECOXIB
  25. PREMPRO (ESTROGENS CONJUGATED, MEDROXYPROGESTERONE ACETATE) [Concomitant]
  26. LIDOCAINE (LIDOCAINE) [Concomitant]
     Active Substance: LIDOCAINE
  27. SPIRIVA [Concomitant]
     Active Substance: TIOTROPIUM BROMIDE MONOHYDRATE

REACTIONS (8)
  - Pulmonary fibrosis [None]
  - Scleroderma [None]
  - Lung neoplasm malignant [None]
  - Pneumonia [None]
  - Pleural effusion [None]
  - Lung disorder [None]
  - Death [None]
  - Squamous cell carcinoma of lung [None]

NARRATIVE: CASE EVENT DATE: 201404
